FAERS Safety Report 8645169 (Version 2)
Quarter: 2012Q4

REPORT INFORMATION
  Report Type: 
  Country: GB (occurrence: GB)
  Receive Date: 20120702
  Receipt Date: 20121010
  Transmission Date: 20130627
  Serious: Yes (Hospitalization, Other)
  Sender: FDA-Public Use
  Company Number: PHFR2012GB003695

PATIENT
  Age: 49 Year
  Sex: Female

DRUGS (6)
  1. CLOZARIL [Suspect]
     Indication: SCHIZOPHRENIA
     Dosage: UNK UKN, UNK
     Route: 048
     Dates: start: 20030612, end: 20120601
  2. OMEPRAZOLE [Concomitant]
     Indication: GASTROOESOPHAGEAL REFLUX DISEASE
     Dosage: 20 mg
     Route: 048
  3. TRANEXAMIC ACID [Concomitant]
     Indication: MENORRHAGIA
     Dosage: 500 mg
     Route: 048
  4. NYSTATIN [Concomitant]
     Indication: ASTHMA
     Dosage: UNK
  5. ASCORBIC ACID [Concomitant]
     Dosage: 50 mg, UNK
     Route: 048
  6. CLOZAPINE [Concomitant]
     Indication: SCHIZOPHRENIA
     Dosage: 100 mg mane and 200 mg nocte
     Route: 048

REACTIONS (6)
  - Blood potassium decreased [Unknown]
  - Impaired self-care [Unknown]
  - Blood urea increased [Unknown]
  - White blood cell count increased [Unknown]
  - Infection [Recovered/Resolved]
  - Dehydration [Recovered/Resolved]
